FAERS Safety Report 23879910 (Version 3)
Quarter: 2025Q2

REPORT INFORMATION
  Report Type: Report from Study
  Country: AU (occurrence: AU)
  Receive Date: 20240521
  Receipt Date: 20250424
  Transmission Date: 20250716
  Serious: Yes (Other)
  Sender: NOVARTIS
  Company Number: AU-002147023-NVSC2024AU106584

PATIENT
  Sex: Female

DRUGS (1)
  1. KESIMPTA [Suspect]
     Active Substance: OFATUMUMAB
     Indication: Relapsing-remitting multiple sclerosis
     Dosage: 20 MG, QMO
     Route: 058
     Dates: start: 20240417

REACTIONS (7)
  - Lower respiratory tract infection [Unknown]
  - Respiratory tract infection viral [Unknown]
  - Epistaxis [Unknown]
  - Visual impairment [Unknown]
  - Illness [Unknown]
  - Malaise [Unknown]
  - Influenza [Unknown]
